FAERS Safety Report 12874459 (Version 5)
Quarter: 2016Q4

REPORT INFORMATION
  Report Type: Spontaneous
  Country: US (occurrence: US)
  Receive Date: 20161021
  Receipt Date: 20161212
  Transmission Date: 20170207
  Serious: Yes (Death)
  Sender: FDA-Public Use
  Company Number: US-ACTELION-A-NJ2016-144153

PATIENT
  Age: 69 Year
  Sex: Female

DRUGS (5)
  1. VENTAVIS [Suspect]
     Active Substance: ILOPROST
     Indication: PULMONARY ARTERIAL HYPERTENSION
     Dosage: 2.5 MCG, 6-9X/DAILY
     Route: 055
  2. VENTAVIS [Suspect]
     Active Substance: ILOPROST
     Dosage: 10 MCG, 6-9X/DAILY
     Route: 055
  3. VENTAVIS [Suspect]
     Active Substance: ILOPROST
     Dosage: 5 MCG, 6 TO 9 X/DAILY
     Route: 055
     Dates: start: 20160928
  4. VENTAVIS [Suspect]
     Active Substance: ILOPROST
     Dosage: UNK
     Route: 055
  5. OPSUMIT [Suspect]
     Active Substance: MACITENTAN
     Indication: PULMONARY ARTERIAL HYPERTENSION
     Dosage: 10 MG, QD
     Route: 048
     Dates: start: 20160311, end: 20161107

REACTIONS (9)
  - Insomnia [Unknown]
  - Dyspnoea [Fatal]
  - Malaise [Unknown]
  - Total lung capacity decreased [Unknown]
  - Arthralgia [Unknown]
  - Peripheral swelling [Not Recovered/Not Resolved]
  - Device difficult to use [Unknown]
  - Disease progression [Fatal]
  - Oedema [Not Recovered/Not Resolved]

NARRATIVE: CASE EVENT DATE: 20161107
